FAERS Safety Report 12437268 (Version 3)
Quarter: 2018Q2

REPORT INFORMATION
  Report Type: Spontaneous
  Country: JP (occurrence: JP)
  Receive Date: 20160606
  Receipt Date: 20180605
  Transmission Date: 20180711
  Serious: Yes (Other)
  Sender: FDA-Public Use
  Company Number: JP-BAUSCH-BL-2016-012860

PATIENT
  Age: 73 Year
  Sex: Female

DRUGS (3)
  1. LUCENTIS [Suspect]
     Active Substance: RANIBIZUMAB
     Indication: MACULAR DEGENERATION
     Route: 047
  2. EYLEA [Suspect]
     Active Substance: AFLIBERCEPT
     Indication: AGE-RELATED MACULAR DEGENERATION
     Route: 047
  3. VERTEPORFIN [Suspect]
     Active Substance: VERTEPORFIN
     Indication: MACULAR DEGENERATION
     Route: 042

REACTIONS (2)
  - Retinal depigmentation [Unknown]
  - Ocular vascular disorder [Unknown]
